FAERS Safety Report 4790960-1 (Version None)
Quarter: 2005Q4

REPORT INFORMATION
  Report Type: 
  Country: None (occurrence: None)
  Receive Date: 20051005
  Receipt Date: 20050916
  Transmission Date: 20060501
  Serious: Yes (Hospitalization)
  Sender: FDA-Public Use
  Company Number: USA0509108414

PATIENT
  Age: 47 Year
  Sex: Female

DRUGS (5)
  1. CYMBALTA [Suspect]
     Indication: DIABETIC NEUROPATHY
     Dosage: 90 MG/2 DAY
  2. SOMA [Concomitant]
  3. ACETAMINOPHEN W/HYDROCODONE [Concomitant]
  4. XANAX [Concomitant]
  5. LAMICTAL [Concomitant]

REACTIONS (3)
  - HEADACHE [None]
  - HYPERTENSION [None]
  - TACHYCARDIA [None]
